FAERS Safety Report 17083871 (Version 1)
Quarter: 2019Q4

REPORT INFORMATION
  Report Type: Report from Study
  Country: IN (occurrence: IN)
  Receive Date: 20191127
  Receipt Date: 20191127
  Transmission Date: 20200122
  Serious: Yes (Death)
  Sender: FDA-Public Use
  Company Number: PHHY2014IN016335

PATIENT
  Age: 32 Year
  Sex: Male

DRUGS (3)
  1. GLIVEC [Suspect]
     Active Substance: IMATINIB MESYLATE
     Indication: CHRONIC MYELOID LEUKAEMIA
     Dosage: 600 MG, UNK
     Route: 065
  2. GLIVEC [Interacting]
     Active Substance: IMATINIB MESYLATE
     Dosage: 800 MG, UNK
     Route: 065
  3. AKT (ISONIAZID\RIFAMPICIN) [Interacting]
     Active Substance: ISONIAZID\RIFAMPIN
     Indication: PRODUCT USED FOR UNKNOWN INDICATION
     Dosage: UNK
     Route: 065

REACTIONS (3)
  - Drug interaction [Unknown]
  - Therapy non-responder [Unknown]
  - Death [Fatal]

NARRATIVE: CASE EVENT DATE: 201909
